FAERS Safety Report 7392493 (Version 2)
Quarter: 2013Q4

REPORT INFORMATION
  Report Type: Spontaneous
  Country: US (occurrence: US)
  Receive Date: 20100519
  Receipt Date: 20131219
  Transmission Date: 20140711
  Serious: Yes (Hospitalization, Other)
  Sender: FDA-Public Use
  Company Number: US-BAYER-201022641NA

PATIENT
  Age: 19 Year
  Sex: Female

DRUGS (6)
  1. YAZ [Suspect]
     Indication: CONTRACEPTION
     Dosage: UNK UNK, UNK
     Route: 048
  2. YASMIN [Suspect]
     Indication: CONTRACEPTION
     Dosage: UNK
     Route: 048
  3. SYNTHROID [Concomitant]
     Indication: HYPOTHYROIDISM
     Dosage: UNK
     Dates: start: 20060901
  4. HYDROCODONE W/APAP [Concomitant]
     Dosage: UNK
     Dates: start: 200711
  5. PROMETHEGAN [Concomitant]
     Dosage: 50 MG, UNK
     Dates: start: 200711
  6. EFFEXOR [Concomitant]
     Dosage: UNK

REACTIONS (2)
  - Gallbladder disorder [Unknown]
  - Cholecystitis acute [None]
